FAERS Safety Report 19495702 (Version 1)
Quarter: 2021Q3

REPORT INFORMATION
  Report Type: Spontaneous
  Country: DE (occurrence: DE)
  Receive Date: 20210706
  Receipt Date: 20210706
  Transmission Date: 20211014
  Serious: Yes (Hospitalization, Other)
  Sender: FDA-Public Use
  Company Number: DE-TEVA-2021-DE-1929128

PATIENT
  Age: 61 Year
  Sex: Male
  Weight: 67 kg

DRUGS (3)
  1. ATORVASTATIN [Suspect]
     Active Substance: ATORVASTATIN
     Dosage: 80 MILLIGRAM DAILY; 0?0?1?0
     Route: 048
  2. IRBEPRESS 150MG [Concomitant]
     Dosage: 150 MILLIGRAM DAILY; 1?0?0?0
     Route: 048
  3. ACETYLSALICYLSAURE [Suspect]
     Active Substance: ASPIRIN
     Dosage: 100 MILLIGRAM DAILY; 1?0?0?0
     Route: 048

REACTIONS (3)
  - Visual impairment [Unknown]
  - Carotid artery stenosis [Unknown]
  - Vision blurred [Unknown]
